FAERS Safety Report 9925787 (Version 2)
Quarter: 2014Q1

REPORT INFORMATION
  Report Type: Spontaneous
  Country: US (occurrence: None)
  Receive Date: 20140221
  Receipt Date: 20140306
  Transmission Date: 20141002
  Serious: Yes (Other)
  Sender: FDA-Public Use
  Company Number: 2014US001235

PATIENT
  Age: 56 Year
  Sex: Female
  Weight: 77.1 kg

DRUGS (11)
  1. HORIZANT [Suspect]
     Indication: RESTLESS LEGS SYNDROME
     Dosage: EVERY EVENING
     Route: 048
     Dates: start: 20131118, end: 20140213
  2. GLIMEPIRIDE (GLIMEPIRIDE) [Concomitant]
  3. THYROXINE (LEVOTHYROXINE SODIUM) [Concomitant]
  4. REQUIP (ROPINIROLE HYDROCHLORIDE) [Concomitant]
  5. LISINOPRIL (LISINOPRIL) [Concomitant]
  6. CELEBREX (CELECOXIB) [Concomitant]
  7. METHOTREXATE (METHOTREXATE) [Concomitant]
  8. FOLIC ACID (FOLIC ACID) [Concomitant]
  9. PERCOCET /00867901/ (OXYCODONE HYDROCHLORIDE, PARACETAMOL) [Concomitant]
  10. FENTANYL (FENTANYL) [Concomitant]
  11. B12 /00056201/ (CYANOCOBALAMIN) [Concomitant]

REACTIONS (2)
  - Suicidal ideation [None]
  - Depression [None]
